FAERS Safety Report 24285654 (Version 1)
Quarter: 2024Q3

REPORT INFORMATION
  Report Type: Spontaneous
  Country: US (occurrence: None)
  Receive Date: 20240904
  Receipt Date: 20240904
  Transmission Date: 20241017
  Serious: Yes (Other)
  Sender: Public
  Company Number: None

PATIENT
  Age: 24 Year
  Sex: Female
  Weight: 62.1 kg

DRUGS (6)
  1. COSENTYX [Suspect]
     Active Substance: SECUKINUMAB
     Indication: Hidradenitis
     Dosage: 300 MG EVERY 4 WEEKS SUBCUTANEOUS
     Route: 058
     Dates: start: 20240226, end: 20240827
  2. Loestrin 01/20 [Concomitant]
  3. Clindamycin 1% solution [Concomitant]
  4. Doxycycline mono 100 mg caps [Concomitant]
  5. Ondansetron ODT 4 mg [Concomitant]
  6. CLINDAMYCIN PHOSPHATE [Concomitant]
     Active Substance: CLINDAMYCIN PHOSPHATE

REACTIONS (2)
  - Hidradenitis [None]
  - Condition aggravated [None]

NARRATIVE: CASE EVENT DATE: 20240615
